FAERS Safety Report 19651505 (Version 3)
Quarter: 2021Q3

REPORT INFORMATION
  Report Type: Spontaneous
  Country: US (occurrence: US)
  Receive Date: 20210803
  Receipt Date: 20210923
  Transmission Date: 20211014
  Serious: Yes (Life-Threatening, Hospitalization, Other)
  Sender: FDA-Public Use
  Company Number: US-TORRENT-00011190

PATIENT
  Sex: Male

DRUGS (4)
  1. SERTRALINE [Suspect]
     Active Substance: SERTRALINE HYDROCHLORIDE
     Indication: MAJOR DEPRESSION
     Dosage: UNKNOWN
     Route: 064
  2. VENLAFAXINE [Suspect]
     Active Substance: VENLAFAXINE HYDROCHLORIDE
     Indication: MAJOR DEPRESSION
     Dosage: TABLET
     Route: 064
  3. BUSPIRONE [Suspect]
     Active Substance: BUSPIRONE HYDROCHLORIDE
     Indication: MAJOR DEPRESSION
     Dosage: UNKNOWN
     Route: 064
  4. TRAZODONE [Suspect]
     Active Substance: TRAZODONE HYDROCHLORIDE
     Indication: MAJOR DEPRESSION
     Dosage: UNKNOWN
     Route: 064

REACTIONS (6)
  - Foetal exposure during pregnancy [Recovering/Resolving]
  - Foetal growth restriction [Unknown]
  - Neonatal behavioural syndrome [Recovering/Resolving]
  - Small for dates baby [Unknown]
  - Withdrawal syndrome [Recovering/Resolving]
  - Serotonin syndrome [Recovering/Resolving]
